FAERS Safety Report 7338308-2 (Version None)
Quarter: 2011Q1

REPORT INFORMATION
  Report Type: 
  Country: None (occurrence: None)
  Receive Date: 20110224
  Receipt Date: 20110210
  Transmission Date: 20110831
  Serious: Yes (Death)
  Sender: FDA-Public Use
  Company Number: 012344

PATIENT
  Age: 94 Year
  Sex: Female

DRUGS (3)
  1. PERINDOPRIL (PERINDOPRIL ERBUMNE) TABLET [Concomitant]
  2. PLETAL [Suspect]
     Indication: ARTERIOSCLEROSIS OBLITERANS
     Dosage: ORAL
     Route: 048
  3. MANIDIPINE HYDROCHLORIDE [Concomitant]

REACTIONS (4)
  - SHOCK HAEMORRHAGIC [None]
  - ANAEMIA [None]
  - AORTIC ANEURYSM RUPTURE [None]
  - RETROPERITONEAL HAEMATOMA [None]
